FAERS Safety Report 16956469 (Version 1)
Quarter: 2019Q4

REPORT INFORMATION
  Report Type: Spontaneous
  Country: US (occurrence: US)
  Receive Date: 20191024
  Receipt Date: 20191024
  Transmission Date: 20200122
  Serious: Yes (Other)
  Sender: FDA-Public Use
  Company Number: US-SUN PHARMACEUTICAL INDUSTRIES LTD-2019R1-225237

PATIENT
  Age: 41 Year
  Sex: Female

DRUGS (1)
  1. PREDNISONE. [Suspect]
     Active Substance: PREDNISONE
     Indication: PRODUCTIVE COUGH
     Dosage: 40 MILLIGRAM, DAILY
     Route: 065

REACTIONS (4)
  - Oedema [Unknown]
  - Therapeutic response decreased [Unknown]
  - Diffuse panbronchiolitis [Unknown]
  - Insomnia [Unknown]
